FAERS Safety Report 17214790 (Version 1)
Quarter: 2019Q4

REPORT INFORMATION
  Report Type: Spontaneous
  Country: DE (occurrence: DE)
  Receive Date: 20191230
  Receipt Date: 20191230
  Transmission Date: 20200122
  Serious: Yes (Other)
  Sender: FDA-Public Use
  Company Number: DE-BAUSCH-BL-2019-066048

PATIENT
  Age: 1 Day
  Sex: Male

DRUGS (3)
  1. DOPEGYT [Concomitant]
     Active Substance: METHYLDOPA
     Indication: PRODUCT USED FOR UNKNOWN INDICATION
     Route: 064
     Dates: start: 20181019, end: 20190628
  2. VENLAFAXINE [Suspect]
     Active Substance: VENLAFAXINE HYDROCHLORIDE
     Indication: PRODUCT USED FOR UNKNOWN INDICATION
     Dosage: 225 MG VARYING DOSAGES BETWEEN 75 AND 225MG
     Route: 064
     Dates: start: 20181019, end: 20190628
  3. METOPROLOL. [Concomitant]
     Active Substance: METOPROLOL
     Indication: PRODUCT USED FOR UNKNOWN INDICATION
     Route: 064
     Dates: start: 20181019, end: 20190628

REACTIONS (6)
  - Infantile apnoea [Recovered/Resolved]
  - Selective eating disorder [Recovered/Resolved]
  - Acoustic stimulation tests abnormal [Not Recovered/Not Resolved]
  - Hypotonia neonatal [Recovered/Resolved]
  - Neonatal respiratory failure [Recovered/Resolved]
  - Bradycardia neonatal [Recovered/Resolved]

NARRATIVE: CASE EVENT DATE: 20190628
